FAERS Safety Report 4780928-3 (Version None)
Quarter: 2005Q3

REPORT INFORMATION
  Report Type: 
  Country: None (occurrence: None)
  Receive Date: 20050926
  Receipt Date: 20050909
  Transmission Date: 20060218
  Serious: Yes (Other)
  Sender: FDA-Public Use
  Company Number: B0394500A

PATIENT
  Age: 43 Year
  Sex: Male

DRUGS (4)
  1. ADVAIR DISKUS 100/50 [Suspect]
     Indication: ASTHMA
     Dosage: 250/50MCG TWICE A DAY; INHALED
     Route: 055
  2. LOPINAVIR + RITONAVIR) (FORMULATION UNKNOWN) (LOPINAVIR + RITONAVIR) [Suspect]
     Indication: HIV INFECTION
  3. AMPRENAVIR [Concomitant]
  4. DIDANOSINE [Concomitant]

REACTIONS (16)
  - ADRENAL SUPPRESSION [None]
  - ASTHENIA [None]
  - CONTUSION [None]
  - CUSHING'S SYNDROME [None]
  - DEPRESSION [None]
  - DRUG INTERACTION [None]
  - FATIGUE [None]
  - INCREASED APPETITE [None]
  - IRRITABILITY [None]
  - LIPOHYPERTROPHY [None]
  - MUSCLE ATROPHY [None]
  - OSTEOPOROSIS [None]
  - RIB FRACTURE [None]
  - SKIN STRIAE [None]
  - SOCIAL AVOIDANT BEHAVIOUR [None]
  - WEIGHT INCREASED [None]
